FAERS Safety Report 9539361 (Version 1)
Quarter: 2013Q3

REPORT INFORMATION
  Report Type: Spontaneous
  Country: CA (occurrence: CA)
  Receive Date: 20130920
  Receipt Date: 20130920
  Transmission Date: 20140515
  Serious: Yes (Other)
  Sender: FDA-Public Use
  Company Number: CA-SANOFI-AVENTIS-2013SA093228

PATIENT
  Age: 9 Year
  Sex: Female
  Weight: 43.6 kg

DRUGS (1)
  1. ELIGARD [Suspect]
     Indication: PRECOCIOUS PUBERTY
     Dosage: DEPOT
     Route: 030

REACTIONS (3)
  - Epiphysiolysis [Unknown]
  - Off label use [Unknown]
  - Incorrect route of drug administration [Unknown]
